FAERS Safety Report 8029682-2 (Version None)
Quarter: 2012Q1

REPORT INFORMATION
  Report Type: 
  Country: None (occurrence: None)
  Receive Date: 20120109
  Receipt Date: 20120106
  Transmission Date: 20120608
  Serious: Yes (Other)
  Sender: FDA-Public Use
  Company Number: US-PFIZER INC-2012004980

PATIENT
  Sex: Male
  Weight: 80.27 kg

DRUGS (2)
  1. CELEBREX [Suspect]
     Dosage: 200 MG, 2X/DAY
     Route: 048
     Dates: start: 20120104, end: 20120105
  2. AMOXICILLIN [Concomitant]
     Indication: PROPHYLAXIS
     Dosage: 875 MG, 2X/DAY
     Route: 048
     Dates: start: 20110101

REACTIONS (4)
  - DYSPNOEA [None]
  - HEART RATE IRREGULAR [None]
  - HAEMATEMESIS [None]
  - HAEMATOCHEZIA [None]
